FAERS Safety Report 5850474-4 (Version None)
Quarter: 2008Q3

REPORT INFORMATION
  Report Type: 
  Country: None (occurrence: None)
  Receive Date: 20080819
  Receipt Date: 20080807
  Transmission Date: 20090109
  Serious: Yes (Other)
  Sender: FDA-Public Use
  Company Number: CN-PFIZER INC-2008065419

PATIENT
  Age: 31 Year
  Sex: Male

DRUGS (3)
  1. ZELDOX (CAPSULES) [Suspect]
     Indication: SCHIZOPHRENIA
     Dosage: DAILY DOSE:120MG
     Route: 048
     Dates: start: 20080701, end: 20080729
  2. SULPIRIDE [Suspect]
     Dosage: DAILY DOSE:200MG
  3. ATROPINE SULFATE [Suspect]

REACTIONS (10)
  - ASTHENIA [None]
  - BLOOD PRESSURE DECREASED [None]
  - BLOOD PRESSURE INCREASED [None]
  - CARDIAC MURMUR [None]
  - DECREASED APPETITE [None]
  - FEELING COLD [None]
  - HEART RATE DECREASED [None]
  - HEART RATE INCREASED [None]
  - PALPITATIONS [None]
  - RESTLESSNESS [None]
